FAERS Safety Report 5738836-7 (Version None)
Quarter: 2008Q2

REPORT INFORMATION
  Report Type: 
  Country: None (occurrence: None)
  Receive Date: 20080515
  Receipt Date: 20080408
  Transmission Date: 20081010
  Serious: No
  Sender: FDA-Public Use
  Company Number: A0721642A

PATIENT
  Sex: Female

DRUGS (3)
  1. VERAMYST [Suspect]
     Route: 045
     Dates: start: 20080321
  2. RANITIDINE [Concomitant]
  3. ALKA SELTZER [Concomitant]

REACTIONS (3)
  - ANXIETY [None]
  - DRUG INEFFECTIVE [None]
  - EUPHORIC MOOD [None]
